FAERS Safety Report 5832085-X (Version None)
Quarter: 2008Q3

REPORT INFORMATION
  Report Type: 
  Country: None (occurrence: None)
  Receive Date: 20080731
  Receipt Date: 20080731
  Transmission Date: 20090109
  Serious: Yes (Other)
  Sender: FDA-Public Use
  Company Number: None

PATIENT
  Age: 39 Year
  Sex: Female
  Weight: 65.7716 kg

DRUGS (1)
  1. LEVAQUIN [Suspect]
     Indication: HEADACHE
     Dosage: 750MG EVERY 24 HOURS PO
     Route: 048
     Dates: start: 20070831, end: 20070904

REACTIONS (1)
  - BACK PAIN [None]
